FAERS Safety Report 9521185 (Version 1)
Quarter: 2013Q1

REPORT INFORMATION
  Report Type: Spontaneous
  Country: US (occurrence: None)
  Receive Date: 20130305
  Receipt Date: 20130305
  Transmission Date: 20140127
  Serious: Yes (Hospitalization)
  Sender: FDA-Public Use
  Company Number: 163-21880-12080282

PATIENT
  Age: 66 Year
  Sex: Male

DRUGS (4)
  1. REVLIMID (LENALIDOMIDE) (CAPSULES) [Suspect]
     Indication: PLASMA CELL MYELOMA
     Route: 048
     Dates: start: 20110620
  2. AMOXICILLIN (AMOXICILLIN) [Concomitant]
  3. AVELOX (MOXIFLOXACIN HYDROCHLORIDE) [Concomitant]
  4. WHOLE BLOOD [Concomitant]

REACTIONS (1)
  - Staphylococcal infection [None]
